APPROVED DRUG PRODUCT: CYCLOPHOSPHAMIDE
Active Ingredient: CYCLOPHOSPHAMIDE
Strength: 500MG/2.5ML (200MG/ML)
Dosage Form/Route: SOLUTION;INTRAVENOUS
Application: N217651 | Product #001
Applicant: BAXTER HEALTHCARE CORP
Approved: Jun 28, 2023 | RLD: Yes | RS: Yes | Type: RX